FAERS Safety Report 15099457 (Version 8)
Quarter: 2019Q1

REPORT INFORMATION
  Report Type: Report from Study
  Country: US (occurrence: US)
  Receive Date: 20180702
  Receipt Date: 20190108
  Transmission Date: 20190417
  Serious: Yes (Hospitalization)
  Sender: FDA-Public Use
  Company Number: US-ACTELION-A-US2018-171830

PATIENT
  Age: 55 Year
  Sex: Female
  Weight: 89.8 kg

DRUGS (6)
  1. OPSUMIT [Suspect]
     Active Substance: MACITENTAN
     Indication: PULMONARY ARTERIAL HYPERTENSION
     Dosage: 10 MG, QD
     Route: 048
     Dates: start: 20180221
  2. VELETRI [Suspect]
     Active Substance: EPOPROSTENOL
     Indication: PULMONARY ARTERIAL HYPERTENSION
     Dosage: 37 NG/KG, PER MIN
     Route: 042
     Dates: end: 20181222
  3. TRACLEER [Concomitant]
     Active Substance: BOSENTAN
  4. VELETRI [Suspect]
     Active Substance: EPOPROSTENOL
     Dosage: 6 NG/KG, UNK
     Route: 042
  5. COUMADIN [Concomitant]
     Active Substance: WARFARIN SODIUM
  6. TRACLEER [Concomitant]
     Active Substance: BOSENTAN

REACTIONS (9)
  - Feeling abnormal [Recovered/Resolved]
  - Skin discolouration [Recovered/Resolved]
  - Uterine haemorrhage [Unknown]
  - Staphylococcal infection [Unknown]
  - Device leakage [Recovered/Resolved]
  - Catheter management [Unknown]
  - Tubo-ovarian abscess [Recovered/Resolved]
  - Uterine mass [Unknown]
  - Device dislocation [Unknown]

NARRATIVE: CASE EVENT DATE: 20180629
